FAERS Safety Report 6125333-2 (Version None)
Quarter: 2009Q1

REPORT INFORMATION
  Report Type: 
  Country: None (occurrence: None)
  Receive Date: 20090320
  Receipt Date: 20090310
  Transmission Date: 20090719
  Serious: Yes (Hospitalization)
  Sender: FDA-Public Use
  Company Number: US-JNJFOC-20090302770

PATIENT
  Sex: Male
  Weight: 61.69 kg

DRUGS (5)
  1. INVEGA [Suspect]
     Indication: ABDOMINAL PAIN
     Route: 048
  2. REGLAN [Concomitant]
     Indication: ABDOMINAL PAIN UPPER
     Route: 048
  3. ALLEGRA [Concomitant]
     Indication: MULTIPLE ALLERGIES
     Route: 048
  4. ZANTAC [Concomitant]
     Indication: DRUG USE FOR UNKNOWN INDICATION
     Route: 048
  5. TOPROL-XL [Concomitant]
     Indication: MITRAL VALVE PROLAPSE
     Route: 048

REACTIONS (7)
  - ABASIA [None]
  - CEREBROVASCULAR ACCIDENT [None]
  - DROOLING [None]
  - HEMIPLEGIA [None]
  - SPEECH DISORDER [None]
  - TARDIVE DYSKINESIA [None]
  - TREMOR [None]
